FAERS Safety Report 5176346-9 (Version None)
Quarter: 2006Q4

REPORT INFORMATION
  Report Type: 
  Country: None (occurrence: None)
  Receive Date: 20061129
  Receipt Date: 20001110
  Transmission Date: 20070319
  Serious: No
  Sender: FDA-Public Use
  Company Number: WSDF_00190

PATIENT
  Age: 60 Year
  Sex: Female
  Weight: 56 kg

DRUGS (1)
  1. WINRHO SDF [Suspect]
     Indication: IDIOPATHIC THROMBOCYTOPENIC PURPURA
     Dosage: 37.5 MCG/KG ONCE IV
     Route: 042
     Dates: start: 20001005, end: 20001005

REACTIONS (7)
  - COOMBS DIRECT TEST POSITIVE [None]
  - DISSEMINATED INTRAVASCULAR COAGULATION [None]
  - EMBOLISM [None]
  - HAEMOGLOBIN DECREASED [None]
  - HAEMORRHAGE [None]
  - HYPOTENSION [None]
  - POST PROCEDURAL COMPLICATION [None]
